FAERS Safety Report 8607443-0 (Version None)
Quarter: 2012Q3

REPORT INFORMATION
  Report Type: 
  Country: None (occurrence: None)
  Receive Date: 20120723
  Receipt Date: 20120705
  Transmission Date: 20120928
  Serious: Yes (Disabling, Other)
  Sender: FDA-Public Use
  Company Number: 11-0933

PATIENT
  Age: 58 Year
  Sex: Female

DRUGS (2)
  1. BOCOUTURE (INJECTION) (CLOSTRIDIUM BOTULIUM NEUROTOXIN TYPE A FREE OF [Suspect]
     Indication: SKIN WRINKLING
     Dosage: (10 IV,1 IN 1 TOTAL) SUBCUTANEOUS
     Route: 058
     Dates: start: 20110318, end: 20110318
  2. PROZAC (FLUOXETINE HYDROCHLORDIE) (FLUOXETINE HYDROCHLORIDE) [Concomitant]

REACTIONS (12)
  - DYSGRAPHIA [None]
  - PARAESTHESIA [None]
  - PRURITUS [None]
  - BRADYCARDIA [None]
  - NAUSEA [None]
  - ASTHENIA [None]
  - VERTIGO [None]
  - GUILLAIN-BARRE SYNDROME [None]
  - DYSPHAGIA [None]
  - HYPOTENSION [None]
  - DYSPHONIA [None]
  - HEADACHE [None]
